FAERS Safety Report 4582393-8 (Version None)
Quarter: 2005Q1

REPORT INFORMATION
  Report Type: 
  Country: None (occurrence: None)
  Receive Date: 20050211
  Receipt Date: 20050211
  Transmission Date: 20050727
  Serious: Yes (Other)
  Sender: FDA-Public Use
  Company Number: None

PATIENT
  Age: 51 Year
  Sex: Male

DRUGS (1)
  1. CLOZAPINE DOSE NOT SPECIFIED [Suspect]
     Indication: SCHIZOAFFECTIVE DISORDER
     Dosage: PO
     Route: 048
     Dates: start: 19970601, end: 19970801

REACTIONS (3)
  - HYPERTENSION [None]
  - PHARMACEUTICAL PRODUCT COMPLAINT [None]
  - TACHYCARDIA [None]
